FAERS Safety Report 20751025 (Version 3)
Quarter: 2022Q3

REPORT INFORMATION
  Report Type: Spontaneous
  Country: US (occurrence: US)
  Receive Date: 20220426
  Receipt Date: 20220826
  Transmission Date: 20221027
  Serious: Yes (Hospitalization, Other)
  Sender: FDA-Public Use
  Company Number: US-PFIZER INC-202200614981

PATIENT
  Age: 84 Year
  Sex: Female
  Weight: 77.11 kg

DRUGS (3)
  1. NIFEDIPINE [Suspect]
     Active Substance: NIFEDIPINE
     Indication: Cardiac disorder
     Dosage: 30 MG, 1X/DAY
     Route: 048
     Dates: start: 202201, end: 20220413
  2. NIFEDIPINE [Suspect]
     Active Substance: NIFEDIPINE
     Indication: Cardiospasm
  3. ISOSORBIDE DINITRATE [Concomitant]
     Active Substance: ISOSORBIDE DINITRATE
     Dosage: 20 MG, 3X/DAY
     Route: 048
     Dates: start: 1988

REACTIONS (4)
  - Loss of consciousness [Unknown]
  - Dizziness [Unknown]
  - Somnolence [Unknown]
  - Feeling abnormal [Unknown]
